FAERS Safety Report 6471222-3 (Version None)
Quarter: 2009Q4

REPORT INFORMATION
  Report Type: 
  Country: None (occurrence: None)
  Receive Date: 20091203
  Receipt Date: 20080624
  Transmission Date: 20100525
  Serious: Yes (Death, Other)
  Sender: FDA-Public Use
  Company Number: ZA-ELI_LILLY_AND_COMPANY-ZA200802000461

PATIENT
  Sex: Male
  Weight: 43 kg

DRUGS (8)
  1. CAPASTAT SULFATE [Suspect]
     Indication: TUBERCULOSIS
     Dosage: 750 MG, DAILY (1/D)
     Route: 030
     Dates: start: 20070519, end: 20070723
  2. P.A.S. [Concomitant]
     Indication: TUBERCULOSIS
     Dosage: 8 G, DAILY (1/D)
     Route: 048
     Dates: start: 20070519, end: 20070723
  3. TERIZIDONE [Concomitant]
     Indication: TUBERCULOSIS
     Dosage: 750 MG, DAILY (1/D)
     Route: 048
     Dates: start: 20070519, end: 20070723
  4. ETHIONAMIDE [Concomitant]
     Indication: TUBERCULOSIS
     Dosage: 500 MG, DAILY (1/D)
     Route: 048
     Dates: start: 20070519, end: 20070723
  5. ETHAMBUTOL HYDROCHLORIDE [Concomitant]
     Indication: TUBERCULOSIS
     Dosage: 800 MG, DAILY (1/D)
     Route: 048
     Dates: start: 20070519, end: 20070723
  6. PYRAZINAMIDE [Concomitant]
     Indication: TUBERCULOSIS
     Dosage: 1 G, DAILY (1/D)
     Route: 048
     Dates: start: 20070519, end: 20070723
  7. BACTRIM [Concomitant]
     Dosage: 8 G, 3/D
     Route: 048
     Dates: start: 20070519, end: 20070723
  8. MULTI-VITAMINS [Concomitant]
     Dosage: UNK, UNKNOWN
     Route: 065

REACTIONS (2)
  - HYPOKALAEMIA [None]
  - NEPHROPATHY TOXIC [None]
